FAERS Safety Report 5648883-1 (Version None)
Quarter: 2008Q1

REPORT INFORMATION
  Report Type: 
  Country: None (occurrence: None)
  Receive Date: 20080303
  Receipt Date: 20080303
  Transmission Date: 20080703
  Serious: Yes (Hospitalization)
  Sender: FDA-Public Use
  Company Number: None

PATIENT
  Age: 44 Year
  Sex: Male
  Weight: 92.8 kg

DRUGS (1)
  1. BUPROPION HCL [Suspect]
     Dosage: 150MG EVERY DAY PO
     Route: 048
     Dates: start: 20080115, end: 20080125

REACTIONS (6)
  - AGITATION [None]
  - HALLUCINATION [None]
  - INSOMNIA [None]
  - MOOD ALTERED [None]
  - MOOD SWINGS [None]
  - NERVOUSNESS [None]
